FAERS Safety Report 4401763-1 (Version None)
Quarter: 2004Q3

REPORT INFORMATION
  Report Type: 
  Country: None (occurrence: None)
  Receive Date: 20040719
  Receipt Date: 20040705
  Transmission Date: 20050211
  Serious: Yes (Life-Threatening, Hospitalization, Other)
  Sender: FDA-Public Use
  Company Number: PHFR2004GB02713

PATIENT
  Age: 56 Year
  Sex: Male

DRUGS (1)
  1. CLOZARIL [Suspect]
     Indication: SCHIZOPHRENIA
     Dosage: 400 MG/DAY
     Route: 048
     Dates: start: 20040304

REACTIONS (4)
  - ABNORMAL BEHAVIOUR [None]
  - CIRCULATORY COLLAPSE [None]
  - MEDICATION ERROR [None]
  - SOMNOLENCE [None]
